FAERS Safety Report 18815447 (Version 1)
Quarter: 2021Q1

REPORT INFORMATION
  Report Type: Spontaneous
  Country: US (occurrence: US)
  Receive Date: 20210130
  Receipt Date: 20210130
  Transmission Date: 20210419
  Serious: Yes (Death)
  Sender: FDA-Public Use
  Company Number: None

PATIENT
  Sex: Male
  Weight: 139 kg

DRUGS (6)
  1. METHOTREXATE. [Concomitant]
     Active Substance: METHOTREXATE
  2. DAUNORUBICIN [Suspect]
     Active Substance: DAUNORUBICIN
  3. PREDNISOLONE. [Concomitant]
     Active Substance: PREDNISOLONE
  4. VINCRISTINE SULFATE. [Concomitant]
     Active Substance: VINCRISTINE SULFATE
  5. CYTARABINE. [Concomitant]
     Active Substance: CYTARABINE
  6. ONCASPAR [Concomitant]
     Active Substance: PEGASPARGASE

REACTIONS (9)
  - Procalcitonin increased [None]
  - Ventricular tachycardia [None]
  - Pancytopenia [None]
  - Blood pressure decreased [None]
  - Cardiac arrest [None]
  - Neurological decompensation [None]
  - Blood culture positive [None]
  - Liver function test increased [None]
  - Paralysis [None]

NARRATIVE: CASE EVENT DATE: 20210122
